FAERS Safety Report 20141367 (Version 2)
Quarter: 2021Q4

REPORT INFORMATION
  Report Type: Spontaneous
  Country: DE (occurrence: DE)
  Receive Date: 20211202
  Receipt Date: 20211208
  Transmission Date: 20220303
  Serious: Yes (Other)
  Sender: FDA-Public Use
  Company Number: DE-FRESENIUS KABI-FK202111066

PATIENT
  Age: 10 Week
  Sex: Female
  Weight: 3 kg

DRUGS (4)
  1. ROCURONIUM [Suspect]
     Active Substance: ROCURONIUM BROMIDE
     Indication: Neuromuscular blockade
     Dosage: 5 MILLIGRAM (EQUIVALENT TO 1.7 MG/KG OF BODY WEIGHT)
     Route: 065
  2. ROCURONIUM [Suspect]
     Active Substance: ROCURONIUM BROMIDE
     Dosage: 1 MILLIGRAM
     Route: 065
  3. SUGAMMADEX [Suspect]
     Active Substance: SUGAMMADEX
     Indication: Neuromuscular blockade
     Dosage: 2 MILLIGRAM/KILOGRAM
     Route: 065
  4. SEVOFLURANE [Concomitant]
     Active Substance: SEVOFLURANE
     Indication: Anaesthesia
     Dosage: UNK

REACTIONS (5)
  - Neuromuscular blockade [Unknown]
  - Accidental overdose [Unknown]
  - Anaesthetic complication [Recovered/Resolved]
  - Neuromuscular block prolonged [Recovered/Resolved]
  - Off label use [Unknown]
